FAERS Safety Report 4586760-8 (Version None)
Quarter: 2005Q1

REPORT INFORMATION
  Report Type: 
  Country: None (occurrence: None)
  Receive Date: 20050218
  Receipt Date: 20050215
  Transmission Date: 20050727
  Serious: Yes (Other)
  Sender: FDA-Public Use
  Company Number: US-BRISTOL-MYERS SQUIBB COMPANY-12863510

PATIENT
  Age: 95 Year
  Sex: Male
  Weight: 77 kg

DRUGS (4)
  1. CARBIDOPA + LEVODOPA CR TABS 50/200MG [Suspect]
     Indication: RESTLESS LEGS SYNDROME
     Dates: start: 20040101
  2. CELEBREX [Concomitant]
     Dosage: DURATION OF THERAPY:  SEVERAL YEARS
  3. PROSCAR [Concomitant]
     Dosage: DURATION OF THERAPY:  SEVERAL YEARS
  4. REQUIP [Concomitant]
     Dosage: DURATION OF THERAPY:  SEVERAL YEARS

REACTIONS (1)
  - BLINDNESS [None]
